FAERS Safety Report 16773481 (Version 1)
Quarter: 2019Q4

REPORT INFORMATION
  Report Type: Spontaneous
  Country: US (occurrence: US)
  Receive Date: 20190904
  Receipt Date: 20190904
  Transmission Date: 20200122
  Serious: Yes (Disabling)
  Sender: FDA-Public Use
  Company Number: None

PATIENT
  Age: 81 Year
  Sex: Male
  Weight: 54 kg

DRUGS (1)
  1. CINACALCET HYDROCHLORIDE 60 MG TAB SLAT NDC:70436-0008-04 [Suspect]
     Active Substance: CINACALCET HYDROCHLORIDE
     Indication: HYPERPARATHYROIDISM
     Dosage: ?          QUANTITY:1 TABLET(S);?
     Route: 048

REACTIONS (2)
  - Product substitution issue [None]
  - Peripheral swelling [None]

NARRATIVE: CASE EVENT DATE: 20190824
